FAERS Safety Report 7315886-0 (Version None)
Quarter: 2011Q1

REPORT INFORMATION
  Report Type: 
  Country: None (occurrence: None)
  Receive Date: 20110216
  Receipt Date: 20110216
  Transmission Date: 20110831
  Serious: Yes (Hospitalization)
  Sender: FDA-Public Use
  Company Number: None

PATIENT
  Age: 78 Year
  Sex: Female
  Weight: 38.6 kg

DRUGS (1)
  1. RECLAST [Suspect]
     Indication: OSTEOPOROSIS
     Dosage: STANDARD 1 TIME INFUSION

REACTIONS (6)
  - DIZZINESS [None]
  - PAIN IN EXTREMITY [None]
  - DIARRHOEA [None]
  - SENSORY DISTURBANCE [None]
  - HYPOGLYCAEMIA [None]
  - BOWEL MOVEMENT IRREGULARITY [None]
